FAERS Safety Report 18162732 (Version 1)
Quarter: 2020Q3

REPORT INFORMATION
  Report Type: Other
  Country: CA (occurrence: CA)
  Receive Date: 20200818
  Receipt Date: 20200818
  Transmission Date: 20201103
  Serious: Yes (Other)
  Sender: FDA-Public Use
  Company Number: CA-APOTEX-2020AP016065

PATIENT
  Age: 26 Year
  Sex: Female

DRUGS (2)
  1. LEVODOPA, CARBIDOPA [Suspect]
     Active Substance: CARBIDOPA\LEVODOPA
     Indication: PARKINSON^S DISEASE
  2. LEVODOPA, CARBIDOPA [Suspect]
     Active Substance: CARBIDOPA\LEVODOPA
     Indication: PRODUCT USED FOR UNKNOWN INDICATION
     Dosage: UNK
     Route: 048

REACTIONS (4)
  - Reaction to excipient [Recovered/Resolved]
  - Rash maculo-papular [Recovered/Resolved]
  - Cognitive disorder [Recovered/Resolved]
  - Immune-mediated adverse reaction [Recovered/Resolved]
